FAERS Safety Report 20219301 (Version 1)
Quarter: 2021Q4

REPORT INFORMATION
  Report Type: Spontaneous
  Country: NL (occurrence: NL)
  Receive Date: 20211222
  Receipt Date: 20211222
  Transmission Date: 20220303
  Serious: No
  Sender: FDA-Public Use
  Company Number: NL-LUPIN PHARMACEUTICALS INC.-2021-25030

PATIENT
  Age: 46 Year
  Sex: Female

DRUGS (7)
  1. CARVEDILOL [Suspect]
     Active Substance: CARVEDILOL
     Indication: Congestive cardiomyopathy
     Dosage: UNK
     Route: 065
     Dates: start: 201806
  2. CARVEDILOL [Suspect]
     Active Substance: CARVEDILOL
     Dosage: 6.25 MILLIGRAM, BID
     Route: 065
     Dates: start: 201806
  3. PERINDOPRIL [Suspect]
     Active Substance: PERINDOPRIL
     Indication: Congestive cardiomyopathy
     Dosage: UNK
     Route: 065
     Dates: start: 201806
  4. PERINDOPRIL [Suspect]
     Active Substance: PERINDOPRIL
     Dosage: 4 MILLIGRAM, QD
     Route: 065
     Dates: start: 201806
  5. FUROSEMIDE [Suspect]
     Active Substance: FUROSEMIDE
     Indication: Congestive cardiomyopathy
     Dosage: UNK
     Route: 065
     Dates: start: 201806
  6. EPLERENONE [Suspect]
     Active Substance: EPLERENONE
     Indication: Congestive cardiomyopathy
     Dosage: 25 MILLIGRAM, QD
     Route: 065
     Dates: start: 201806
  7. IVABRADINE [Suspect]
     Active Substance: IVABRADINE
     Indication: Heart rate increased
     Dosage: UNK
     Route: 065
     Dates: start: 201806

REACTIONS (2)
  - Dizziness [Unknown]
  - Hypotension [Unknown]

NARRATIVE: CASE EVENT DATE: 20180101
